FAERS Safety Report 16395441 (Version 1)
Quarter: 2019Q2

REPORT INFORMATION
  Report Type: Spontaneous
  Country: US (occurrence: US)
  Receive Date: 20190605
  Receipt Date: 20190605
  Transmission Date: 20190711
  Serious: Yes (Other)
  Sender: FDA-Public Use
  Company Number: US-COOPERSURGICAL, INC.-US-2019CPS001657

PATIENT
  Sex: Female

DRUGS (1)
  1. PARAGARD T 380A [Suspect]
     Active Substance: COPPER
     Indication: PRODUCT USED FOR UNKNOWN INDICATION
     Dosage: UNK
     Route: 015
     Dates: start: 2014, end: 2019

REACTIONS (6)
  - Bacterial vaginosis [Unknown]
  - Foreign body in reproductive tract [Unknown]
  - Device expulsion [Recovered/Resolved]
  - Device breakage [Unknown]
  - Urinary tract infection [Unknown]
  - Complication of device removal [Unknown]

NARRATIVE: CASE EVENT DATE: 201903
